FAERS Safety Report 8116719-5 (Version None)
Quarter: 2012Q1

REPORT INFORMATION
  Report Type: 
  Country: None (occurrence: None)
  Receive Date: 20120206
  Receipt Date: 20120130
  Transmission Date: 20120608
  Serious: Yes (Other)
  Sender: FDA-Public Use
  Company Number: PHHY2011DE70218

PATIENT
  Sex: Male
  Weight: 69 kg

DRUGS (15)
  1. ASPIRIN [Concomitant]
     Dosage: 100
  2. DREISAFER [Concomitant]
  3. EXELON [Suspect]
     Indication: DEMENTIA
     Dosage: 4.6 MG/ 24 H, UNK
     Route: 062
     Dates: start: 20110714, end: 20110715
  4. BISOPROLOL [Concomitant]
     Dosage: 5 MG, UNK
  5. RAMIPRIL [Concomitant]
     Dosage: 2.5 MG, UNK
  6. EXELON [Suspect]
     Dosage: 4.6 MG/24 HRS
     Route: 062
  7. SEROQUEL [Concomitant]
     Dosage: 50 MG, UNK
  8. SPIRONOLACTONE [Concomitant]
     Dosage: 25 MG, UNK
  9. ENOXAPARIN SODIUM [Concomitant]
     Dosage: 0.2
  10. TORSEMIDE [Concomitant]
     Dosage: 5 MG, UNK
  11. ULCOGANT                                /GFR/ [Concomitant]
     Dosage: UNK UKN, UNK
  12. TAMSULOSIN HCL [Concomitant]
     Dosage: 0.4 MG, UNK
  13. LORAZEPAM [Concomitant]
     Dosage: 1 MG, UNK
  14. STALEVO 100 [Concomitant]
     Dosage: 150/ 37.5/ 200
  15. PENTAERYTHRITOL TETRANITRATE [Concomitant]
     Dosage: 50 MG, BID

REACTIONS (4)
  - MIOSIS [None]
  - UNRESPONSIVE TO STIMULI [None]
  - CARDIOVASCULAR INSUFFICIENCY [None]
  - RESPIRATORY DEPRESSION [None]
